FAERS Safety Report 24351387 (Version 1)
Quarter: 2024Q3

REPORT INFORMATION
  Report Type: Spontaneous
  Country: RU (occurrence: RU)
  Receive Date: 20240923
  Receipt Date: 20240923
  Transmission Date: 20241016
  Serious: No
  Sender: ROCHE
  Company Number: RU-ROCHE-3541643

PATIENT
  Age: 67 Year
  Sex: Female

DRUGS (23)
  1. TRASTUZUMAB [Suspect]
     Active Substance: TRASTUZUMAB
     Indication: Breast cancer
     Route: 065
     Dates: start: 201605, end: 201611
  2. TRASTUZUMAB [Suspect]
     Active Substance: TRASTUZUMAB
     Route: 065
     Dates: start: 201910, end: 20200806
  3. TRASTUZUMAB [Suspect]
     Active Substance: TRASTUZUMAB
     Dosage: (8 MG/KG LOADING DOSE) ON DAY 1
     Route: 065
     Dates: start: 20230123
  4. TRASTUZUMAB [Suspect]
     Active Substance: TRASTUZUMAB
     Route: 065
     Dates: start: 202302, end: 202308
  5. TRASTUZUMAB [Suspect]
     Active Substance: TRASTUZUMAB
     Route: 065
     Dates: start: 202309
  6. KADCYLA [Suspect]
     Active Substance: ADO-TRASTUZUMAB EMTANSINE
     Indication: Breast cancer
     Dosage: AT 21-DAY INTERVALS, 3 ADMINIS TRATIONS OF CTT TRAS TUZUMAB EMTANS INE BETWEEN OCT/2022 AND DEC/2022
     Route: 065
  7. PERTUZUMAB [Suspect]
     Active Substance: PERTUZUMAB
     Indication: Breast cancer
     Dosage: (840 MG LOADING DOSE) ON DAY 1; 21-DAY CYCLE - CT MONITORING AFTER THE 3RD AND 6TH CYCLES OF CT+TT
     Route: 065
     Dates: start: 20230123
  8. PERTUZUMAB [Suspect]
     Active Substance: PERTUZUMAB
     Route: 065
     Dates: start: 202302, end: 202308
  9. PERTUZUMAB [Suspect]
     Active Substance: PERTUZUMAB
     Route: 065
     Dates: start: 202309
  10. CYCLOPHOSPHAMIDE [Suspect]
     Active Substance: CYCLOPHOSPHAMIDE
     Indication: Breast cancer
     Route: 065
     Dates: start: 201311, end: 201405
  11. CYCLOPHOSPHAMIDE [Suspect]
     Active Substance: CYCLOPHOSPHAMIDE
     Route: 065
     Dates: start: 201605, end: 201611
  12. DOXORUBICIN [Suspect]
     Active Substance: DOXORUBICIN
     Indication: Breast cancer
     Route: 065
     Dates: start: 201311, end: 201405
  13. FLUOROURACIL [Suspect]
     Active Substance: FLUOROURACIL
     Indication: Breast cancer
     Route: 065
     Dates: start: 201311, end: 201405
  14. PACLITAXEL [Suspect]
     Active Substance: PACLITAXEL
     Indication: Breast cancer
     Route: 065
     Dates: start: 20150227
  15. DOCETAXEL [Suspect]
     Active Substance: DOCETAXEL\DOCETAXEL ANHYDROUS
     Indication: Breast cancer
     Route: 065
     Dates: start: 201605, end: 201611
  16. DOCETAXEL [Suspect]
     Active Substance: DOCETAXEL\DOCETAXEL ANHYDROUS
     Route: 065
     Dates: start: 20181210, end: 201906
  17. DOCETAXEL [Suspect]
     Active Substance: DOCETAXEL\DOCETAXEL ANHYDROUS
     Dosage: 75-100 MG/M2 ON DAY 1
     Route: 065
     Dates: start: 20230123
  18. DOCETAXEL [Suspect]
     Active Substance: DOCETAXEL\DOCETAXEL ANHYDROUS
     Route: 065
     Dates: start: 202302, end: 202308
  19. VINORELBINE [Suspect]
     Active Substance: VINORELBINE TARTRATE
     Indication: Breast cancer
     Route: 065
     Dates: start: 201702, end: 201805
  20. MITOMYCIN [Suspect]
     Active Substance: MITOMYCIN
     Indication: Breast cancer
     Route: 065
     Dates: start: 201702, end: 201805
  21. ERIBULIN [Suspect]
     Active Substance: ERIBULIN
     Indication: Breast cancer
     Route: 065
     Dates: start: 201910, end: 20200806
  22. IXABEPILONE [Suspect]
     Active Substance: IXABEPILONE
     Indication: Breast cancer
     Route: 065
     Dates: start: 20201119
  23. IXABEPILONE [Suspect]
     Active Substance: IXABEPILONE
     Route: 065
     Dates: start: 20201225, end: 20220822

REACTIONS (1)
  - Disease progression [Unknown]
